FAERS Safety Report 7054499-5 (Version None)
Quarter: 2010Q4

REPORT INFORMATION
  Report Type: 
  Country: None (occurrence: None)
  Receive Date: 20101015
  Receipt Date: 20101004
  Transmission Date: 20110411
  Serious: Yes (Hospitalization)
  Sender: FDA-Public Use
  Company Number: GER/GER/09/0008568

PATIENT
  Age: 66 Year
  Sex: Male
  Weight: 54 kg

DRUGS (3)
  1. CLINDAMYCIN [Suspect]
     Indication: WOUND INFECTION
     Dosage: 600 MG, 3 IN 1 D, ORAL
     Route: 048
     Dates: start: 20081007, end: 20081025
  2. IBUPROFEN [Suspect]
     Indication: BONE PAIN
     Dosage: 800 MG, 1 IN 1 D, ORAL
     Route: 048
     Dates: start: 20080910, end: 20081104
  3. NEXIUM (ESOEPRAZOLE MAGNESIUM) [Concomitant]

REACTIONS (3)
  - ADENOVIRUS TEST POSITIVE [None]
  - PSEUDOMEMBRANOUS COLITIS [None]
  - ROTAVIRUS TEST POSITIVE [None]
